FAERS Safety Report 12012802 (Version 7)
Quarter: 2016Q3

REPORT INFORMATION
  Report Type: Spontaneous
  Country: US (occurrence: US)
  Receive Date: 20160205
  Receipt Date: 20160808
  Transmission Date: 20161109
  Serious: No
  Sender: FDA-Public Use
  Company Number: US-BAUSCH-BL-2015-026981

PATIENT
  Age: 52 Year
  Sex: Male

DRUGS (10)
  1. RUCONEST [Suspect]
     Active Substance: HUMAN C1-ESTERASE INHIBITOR
     Dosage: 4200 UNITS AS NEEDED
     Route: 042
     Dates: start: 20160708
  2. BENADRYL [Concomitant]
     Active Substance: DIPHENHYDRAMINE HYDROCHLORIDE
     Indication: PRODUCT USED FOR UNKNOWN INDICATION
  3. RUCONEST [Suspect]
     Active Substance: HUMAN C1-ESTERASE INHIBITOR
     Indication: HEREDITARY ANGIOEDEMA
     Dosage: AS NEEDED
     Route: 042
     Dates: start: 20150922, end: 20150922
  4. DILAUDID [Concomitant]
     Active Substance: HYDROMORPHONE HYDROCHLORIDE
     Indication: PRODUCT USED FOR UNKNOWN INDICATION
  5. PHENERGAN [Concomitant]
     Active Substance: PROMETHAZINE HYDROCHLORIDE
     Indication: PRODUCT USED FOR UNKNOWN INDICATION
  6. RUCONEST [Suspect]
     Active Substance: HUMAN C1-ESTERASE INHIBITOR
     Indication: PROPHYLAXIS
     Dosage: AS NEEDED
     Route: 042
     Dates: start: 20151008, end: 20151008
  7. FIRAZYR [Concomitant]
     Active Substance: ICATIBANT ACETATE
     Indication: PRODUCT USED FOR UNKNOWN INDICATION
     Dates: start: 20160708
  8. RUCONEST [Suspect]
     Active Substance: HUMAN C1-ESTERASE INHIBITOR
     Dosage: AS NEEDED
     Route: 042
     Dates: start: 201511, end: 201511
  9. RUCONEST [Suspect]
     Active Substance: HUMAN C1-ESTERASE INHIBITOR
     Dosage: 4200 IU THREE TIMES A WEEK OR WHEN REQUIRED.
     Route: 042
     Dates: start: 201511, end: 201511
  10. RUCONEST [Suspect]
     Active Substance: HUMAN C1-ESTERASE INHIBITOR
     Dosage: ONE DOSE
     Route: 042
     Dates: start: 20160414, end: 20160414

REACTIONS (3)
  - Drug ineffective [Unknown]
  - Oral surgery [Unknown]
  - Intentional product misuse [Unknown]

NARRATIVE: CASE EVENT DATE: 20160427
